FAERS Safety Report 6454052-8 (Version None)
Quarter: 2009Q4

REPORT INFORMATION
  Report Type: 
  Country: None (occurrence: None)
  Receive Date: 20091124
  Receipt Date: 20091113
  Transmission Date: 20100525
  Serious: Yes (Hospitalization)
  Sender: FDA-Public Use
  Company Number: B0594233A

PATIENT
  Sex: Female

DRUGS (4)
  1. ALKERAN [Suspect]
     Indication: POEMS SYNDROME
     Route: 065
     Dates: start: 20090818
  2. IMUREL [Concomitant]
  3. TEGELINE [Concomitant]
  4. CORTICOSTEROIDS [Concomitant]

REACTIONS (3)
  - LEUKOPENIA [None]
  - PYREXIA [None]
  - THROMBOCYTOPENIA [None]
